FAERS Safety Report 4665020-0 (Version None)
Quarter: 2005Q2

REPORT INFORMATION
  Report Type: 
  Country: None (occurrence: None)
  Receive Date: 20050517
  Receipt Date: 20050428
  Transmission Date: 20051028
  Serious: Yes (Hospitalization)
  Sender: FDA-Public Use
  Company Number: FR90090722A

PATIENT
  Age: 35 Year
  Sex: Male
  Weight: 53 kg

DRUGS (5)
  1. PROZAC [Suspect]
     Indication: DEPRESSION
     Dosage: 20 MG DAY
     Route: 048
     Dates: start: 19900628, end: 19900629
  2. RETROVIR [Concomitant]
  3. BACTRIM [Concomitant]
  4. FLUCONAZOLE [Concomitant]
  5. PRAZEPAM [Concomitant]

REACTIONS (11)
  - ALANINE AMINOTRANSFERASE INCREASED [None]
  - ANAEMIA [None]
  - ASPARTATE AMINOTRANSFERASE INCREASED [None]
  - BLOOD CREATININE INCREASED [None]
  - BRONCHITIS [None]
  - GAMMA-GLUTAMYLTRANSFERASE INCREASED [None]
  - LEUKOPENIA [None]
  - RADIAL NERVE PALSY [None]
  - SOMNOLENCE [None]
  - TOOTH INFECTION [None]
  - TOXIC EPIDERMAL NECROLYSIS [None]
